FAERS Safety Report 25778105 (Version 1)
Quarter: 2025Q3

REPORT INFORMATION
  Report Type: Spontaneous
  Country: US (occurrence: US)
  Receive Date: 20250909
  Receipt Date: 20250909
  Transmission Date: 20251021
  Serious: Yes (Other)
  Sender: MYLAN
  Company Number: US-MYLANLABS-2025M1075431

PATIENT
  Age: 62 Year
  Sex: Female

DRUGS (8)
  1. TACROLIMUS [Suspect]
     Active Substance: TACROLIMUS
     Indication: Skin disorder
  2. TACROLIMUS [Suspect]
     Active Substance: TACROLIMUS
     Indication: Pseudolymphoma
     Route: 061
  3. TACROLIMUS [Suspect]
     Active Substance: TACROLIMUS
     Route: 061
  4. TACROLIMUS [Suspect]
     Active Substance: TACROLIMUS
  5. MOMETASONE [Suspect]
     Active Substance: MOMETASONE
     Indication: Pseudolymphoma
  6. MOMETASONE [Suspect]
     Active Substance: MOMETASONE
     Indication: Skin disorder
     Route: 065
  7. MOMETASONE [Suspect]
     Active Substance: MOMETASONE
     Route: 065
  8. MOMETASONE [Suspect]
     Active Substance: MOMETASONE

REACTIONS (2)
  - Drug ineffective for unapproved indication [Unknown]
  - Off label use [Unknown]
